FAERS Safety Report 8997933 (Version 1)
Quarter: 2013Q1

REPORT INFORMATION
  Report Type: Other
  Country: JP (occurrence: JP)
  Receive Date: 20130104
  Receipt Date: 20130104
  Transmission Date: 20140127
  Serious: Yes (Other)
  Sender: FDA-Public Use
  Company Number: JP-BRISTOL-MYERS SQUIBB COMPANY-17262916

PATIENT
  Sex: 0

DRUGS (1)
  1. WARFARIN SODIUM [Suspect]

REACTIONS (1)
  - Embolism [Unknown]
